FAERS Safety Report 5252367-2 (Version None)
Quarter: 2007Q1

REPORT INFORMATION
  Report Type: 
  Country: None (occurrence: None)
  Receive Date: 20070301
  Receipt Date: 20060811
  Transmission Date: 20070707
  Serious: No
  Sender: FDA-Public Use
  Company Number: US-BRISTOL-MYERS SQUIBB COMPANY-13473764

PATIENT
  Sex: Female
  Weight: 69 kg

DRUGS (5)
  1. TAXOL [Suspect]
     Indication: BREAST CANCER
     Dates: start: 20060217
  2. AVASTIN [Suspect]
  3. ASCORBIC ACID [Concomitant]
  4. MOTRIN [Concomitant]
  5. COMPAZINE [Concomitant]

REACTIONS (1)
  - NEUROPATHY [None]
